FAERS Safety Report 25957663 (Version 3)
Quarter: 2025Q4

REPORT INFORMATION
  Report Type: Report from Study
  Country: US (occurrence: US)
  Receive Date: 20251024
  Receipt Date: 20251208
  Transmission Date: 20260118
  Serious: No
  Sender: MALLINCKRODT
  Company Number: US-MALLINCKRODT-MNK202506654

PATIENT
  Age: 50 Year
  Sex: Male

DRUGS (3)
  1. CORTICOTROPIN [Suspect]
     Active Substance: CORTICOTROPIN
     Indication: Uveitis
     Dosage: 80 UNITS
  2. CORTICOTROPIN [Suspect]
     Active Substance: CORTICOTROPIN
     Route: 058
  3. CORTICOTROPIN [Suspect]
     Active Substance: CORTICOTROPIN
     Route: 058

REACTIONS (2)
  - Injection site pain [Unknown]
  - Injection site bruising [Unknown]
